FAERS Safety Report 20604438 (Version 3)
Quarter: 2022Q1

REPORT INFORMATION
  Report Type: Report from Study
  Country: BE (occurrence: None)
  Receive Date: 20220316
  Receipt Date: 20220325
  Transmission Date: 20220423
  Serious: Yes (Death, Other)
  Sender: FDA-Public Use
  Company Number: 2022A114330

PATIENT
  Age: 23658 Day
  Sex: Male

DRUGS (2)
  1. IMFINZI [Suspect]
     Active Substance: DURVALUMAB
     Indication: Small cell lung cancer extensive stage
     Dosage: FOR 4 CYCLES
     Route: 042
     Dates: start: 20210916
  2. IMFINZI [Suspect]
     Active Substance: DURVALUMAB
     Indication: Small cell lung cancer extensive stage
     Dosage: FOR 4 CYCLES
     Route: 042

REACTIONS (2)
  - Death [Fatal]
  - General physical health deterioration [Unknown]

NARRATIVE: CASE EVENT DATE: 20220306
